FAERS Safety Report 4299013-2 (Version None)
Quarter: 2004Q1

REPORT INFORMATION
  Report Type: 
  Country: None (occurrence: None)
  Receive Date: 20040219
  Receipt Date: 20000605
  Transmission Date: 20041129
  Serious: Yes (Disabling)
  Sender: FDA-Public Use
  Company Number: 10410553

PATIENT
  Age: 37 Year
  Sex: Male

DRUGS (10)
  1. ZERIT [Suspect]
     Indication: HIV INFECTION
     Dosage: MARCH 1996 TO JUNE 1996, AUGUST 1997 TO MARCH 1999
     Route: 048
     Dates: start: 19960301, end: 19990301
  2. DIDANOSINE [Suspect]
     Indication: HIV INFECTION
     Dates: start: 19950601, end: 19960601
  3. RETROVIR [Suspect]
     Dates: start: 19941201, end: 19960301
  4. EPIVIR [Suspect]
     Dates: start: 19951001, end: 19990301
  5. NORVIR [Suspect]
     Dates: start: 19960601, end: 19960901
  6. INVIRASE [Suspect]
     Dates: start: 19970401, end: 19990301
  7. KETOCONAZOLE [Concomitant]
     Dates: start: 19970801, end: 19990301
  8. FORTOVASE [Concomitant]
     Dates: start: 19970801, end: 19990301
  9. VIRACEPT [Concomitant]
     Dates: end: 19990301
  10. ZIAGEN [Concomitant]
     Dates: end: 19990301

REACTIONS (19)
  - ANAEMIA [None]
  - BLOOD CREATININE INCREASED [None]
  - CLAVICLE FRACTURE [None]
  - DEPRESSION [None]
  - FOOT FRACTURE [None]
  - GRANULOCYTOPENIA [None]
  - INFLAMMATION [None]
  - LEUKOPENIA [None]
  - MEAN CELL VOLUME ABNORMAL [None]
  - MITOCHONDRIAL TOXICITY [None]
  - MUSCLE ATROPHY [None]
  - MUSCLE FATIGUE [None]
  - MYALGIA [None]
  - NEUROPATHY PERIPHERAL [None]
  - NEUTROPENIA [None]
  - OSTEOPOROSIS [None]
  - TUBERCULOSIS [None]
  - VITAMIN D DECREASED [None]
  - VITAMIN D DEFICIENCY [None]
